FAERS Safety Report 25435000 (Version 1)
Quarter: 2025Q2

REPORT INFORMATION
  Report Type: Spontaneous
  Country: CN (occurrence: CN)
  Receive Date: 20250613
  Receipt Date: 20250613
  Transmission Date: 20250716
  Serious: Yes (Hospitalization, Other)
  Sender: SANOFI AVENTIS
  Company Number: CN-SA-2025SA163503

PATIENT
  Age: 92 Year
  Sex: Male
  Weight: 50 kg

DRUGS (9)
  1. ZOLPIDEM TARTRATE [Suspect]
     Active Substance: ZOLPIDEM TARTRATE
     Indication: Insomnia
     Dosage: 10 MG, QD
     Route: 048
     Dates: start: 20250521, end: 20250521
  2. KETOTIFEN FUMARATE [Concomitant]
     Active Substance: KETOTIFEN FUMARATE
     Indication: Cough
     Dosage: 1 MG, QD
     Route: 048
     Dates: start: 20250516, end: 20250521
  3. NALOXONE [Concomitant]
     Active Substance: NALOXONE
     Indication: Respiratory depression
     Dates: start: 202505
  4. METHYLPREDNISOLONE SODIUM SUCCINATE [Concomitant]
     Active Substance: METHYLPREDNISOLONE SODIUM SUCCINATE
     Indication: Inflammation
     Dates: start: 202505
  5. METHYLPREDNISOLONE SODIUM SUCCINATE [Concomitant]
     Active Substance: METHYLPREDNISOLONE SODIUM SUCCINATE
     Indication: Asthma
  6. Chuan ding [Concomitant]
     Indication: Inflammation
     Dates: start: 20250522
  7. Chuan ding [Concomitant]
     Indication: Asthma
  8. SODIUM ACETATE [Concomitant]
     Active Substance: SODIUM ACETATE
     Indication: Nutritional supplementation
     Dates: start: 20250522
  9. DEXTROSE [Concomitant]
     Active Substance: DEXTROSE MONOHYDRATE
     Indication: Nutritional supplementation
     Dates: start: 20250522

REACTIONS (11)
  - Sopor [Recovering/Resolving]
  - Productive cough [Recovering/Resolving]
  - Tachypnoea [Recovering/Resolving]
  - Pupillary reflex impaired [Recovering/Resolving]
  - Cyanosis [Recovering/Resolving]
  - Breath sounds abnormal [Recovering/Resolving]
  - Mouth breathing [Recovered/Resolved]
  - Eye disorder [Recovering/Resolving]
  - Dyspnoea [Recovering/Resolving]
  - Loss of consciousness [Recovered/Resolved]
  - Asthenia [Recovered/Resolved]

NARRATIVE: CASE EVENT DATE: 20250522
